FAERS Safety Report 12925118 (Version 1)
Quarter: 2016Q4

REPORT INFORMATION
  Report Type: Spontaneous
  Country: CA (occurrence: CA)
  Receive Date: 20161109
  Receipt Date: 20161109
  Transmission Date: 20170207
  Serious: Yes (Death, Hospitalization)
  Sender: FDA-Public Use
  Company Number: CA-INCYTE CORPORATION-2016IN007038

PATIENT
  Age: 70 Year
  Sex: Male
  Weight: 97 kg

DRUGS (4)
  1. JAKAVI [Suspect]
     Active Substance: RUXOLITINIB
     Indication: MYELOFIBROSIS
     Dosage: 10 MG, QD (2 EVERY 1 DAY)
     Route: 048
  2. LANSOPRAZOLE. [Concomitant]
     Active Substance: LANSOPRAZOLE
     Indication: PRODUCT USED FOR UNKNOWN INDICATION
     Route: 065
  3. ASPIRIN. [Concomitant]
     Active Substance: ASPIRIN
     Indication: PRODUCT USED FOR UNKNOWN INDICATION
     Route: 065
  4. BISOPROLOL                         /01166101/ [Concomitant]
     Indication: PRODUCT USED FOR UNKNOWN INDICATION

REACTIONS (12)
  - Lactic acidosis [Fatal]
  - Malaise [Fatal]
  - Body temperature decreased [Fatal]
  - Hypotension [Fatal]
  - Fatigue [Fatal]
  - Pneumonia [Fatal]
  - Back pain [Fatal]
  - Distributive shock [Fatal]
  - Pyrexia [Fatal]
  - Febrile neutropenia [Fatal]
  - Pancytopenia [Fatal]
  - Septic shock [Fatal]
